FAERS Safety Report 8078791-0 (Version None)
Quarter: 2012Q1

REPORT INFORMATION
  Report Type: 
  Country: None (occurrence: None)
  Receive Date: 20120124
  Receipt Date: 20120110
  Transmission Date: 20120608
  Serious: Yes (Death)
  Sender: FDA-Public Use
  Company Number: 1000027263

PATIENT
  Age: 30 Year
  Sex: Male

DRUGS (5)
  1. COCAINE (COCAINE) [Suspect]
     Dosage: ORAL
     Route: 048
  2. QUETIAPINE FUMARATE [Suspect]
     Dosage: ORAL
     Route: 048
  3. MARIJUANA (CANNABIS SATIVA) [Suspect]
  4. ETHANOL (ETHANOL) [Suspect]
     Dosage: ORAL
     Route: 048
  5. CITALOPRAM HYDROBROMIDE [Suspect]
     Dosage: ORAL
     Route: 048

REACTIONS (1)
  - COMPLETED SUICIDE [None]
